FAERS Safety Report 6502008-9 (Version None)
Quarter: 2009Q4

REPORT INFORMATION
  Report Type: 
  Country: None (occurrence: None)
  Receive Date: 20091216
  Receipt Date: 20091208
  Transmission Date: 20100525
  Serious: Yes (Other)
  Sender: FDA-Public Use
  Company Number: US-AMGEN-QUU369267

PATIENT
  Sex: Female
  Weight: 64.5 kg

DRUGS (5)
  1. ENBREL [Suspect]
     Indication: RHEUMATOID ARTHRITIS
     Dates: start: 20050414, end: 20090901
  2. ZANTAC [Concomitant]
     Dates: start: 20080601
  3. PREDNISONE [Concomitant]
     Dates: start: 20090901
  4. CALCIUM [Concomitant]
  5. VITAMIN D [Concomitant]

REACTIONS (1)
  - BENIGN INTRACRANIAL HYPERTENSION [None]
